FAERS Safety Report 9252717 (Version 1)
Quarter: 2013Q1

REPORT INFORMATION
  Report Type: Spontaneous
  Country: US (occurrence: None)
  Receive Date: 20130305
  Receipt Date: 20130305
  Transmission Date: 20140127
  Serious: Yes (Other)
  Sender: FDA-Public Use
  Company Number: 163-21880-12090751

PATIENT
  Age: 67 Year
  Sex: Male

DRUGS (3)
  1. REVLIMID [Suspect]
     Indication: 5Q MINUS SYNDROME
     Dosage: 28 IN 28 D
     Route: 048
     Dates: start: 20120820, end: 20120914
  2. SIMVASTATIN (SIMVASTATIN) [Concomitant]
  3. LASIX (FUROSEMIDE) [Concomitant]
     Indication: 5Q MINUS SYNDROME

REACTIONS (1)
  - Pancytopenia [None]
